FAERS Safety Report 12263712 (Version 1)
Quarter: 2016Q2

REPORT INFORMATION
  Report Type: Report from Study
  Country: US (occurrence: US)
  Receive Date: 20160413
  Receipt Date: 20160413
  Transmission Date: 20160815
  Serious: No
  Sender: FDA-Public Use
  Company Number: PHEH2015US027709

PATIENT
  Age: 76 Year
  Sex: Male

DRUGS (1)
  1. VOTRIENT [Suspect]
     Active Substance: PAZOPANIB HYDROCHLORIDE
     Indication: METASTATIC RENAL CELL CARCINOMA
     Dosage: 800 OT, QID
     Route: 048
     Dates: start: 201407

REACTIONS (4)
  - Abdominal distension [Recovering/Resolving]
  - Pain in extremity [Recovering/Resolving]
  - Lacrimation increased [Recovering/Resolving]
  - Peripheral swelling [Recovering/Resolving]
